FAERS Safety Report 8444129-X (Version None)
Quarter: 2012Q2

REPORT INFORMATION
  Report Type: 
  Country: None (occurrence: None)
  Receive Date: 20120618
  Receipt Date: 20120607
  Transmission Date: 20120825
  Serious: Yes (Other)
  Sender: FDA-Public Use
  Company Number: BE-BRISTOL-MYERS SQUIBB COMPANY-16271975

PATIENT

DRUGS (1)
  1. SPRYCEL [Suspect]
     Dosage: SINCE A WHILE

REACTIONS (1)
  - LYMPHADENITIS [None]
